FAERS Safety Report 17941649 (Version 1)
Quarter: 2020Q2

REPORT INFORMATION
  Report Type: Spontaneous
  Country: US (occurrence: US)
  Receive Date: 20200625
  Receipt Date: 20200625
  Transmission Date: 20200714
  Serious: No
  Sender: FDA-Public Use
  Company Number: US-SA-2020SA159179

PATIENT

DRUGS (1)
  1. FABRAZYME [Suspect]
     Active Substance: AGALSIDASE BETA
     Route: 065

REACTIONS (4)
  - Globotriaosylceramide increased [Unknown]
  - Neutralising antibodies positive [Unknown]
  - Drug specific antibody present [Unknown]
  - Drug specific antibody absent [Unknown]

NARRATIVE: CASE EVENT DATE: 20200528
